FAERS Safety Report 11216525 (Version 1)
Quarter: 2015Q2

REPORT INFORMATION
  Report Type: Spontaneous
  Country: US (occurrence: US)
  Receive Date: 20150624
  Receipt Date: 20150624
  Transmission Date: 20150821
  Serious: Yes (Hospitalization)
  Sender: FDA-Public Use
  Company Number: US-MALLINCKRODT-T201503017

PATIENT
  Age: 14 Year
  Sex: Female

DRUGS (1)
  1. OXYCODONE [Suspect]
     Active Substance: OXYCODONE
     Indication: PRODUCT USED FOR UNKNOWN INDICATION
     Dosage: 5 MG TABLETS, TOOK 15
     Route: 048

REACTIONS (4)
  - Akathisia [Recovering/Resolving]
  - Overdose [Recovered/Resolved]
  - Intentional product misuse [Unknown]
  - Toxic encephalopathy [Recovering/Resolving]
